FAERS Safety Report 8276799-3 (Version None)
Quarter: 2012Q2

REPORT INFORMATION
  Report Type: 
  Country: None (occurrence: None)
  Receive Date: 20120412
  Receipt Date: 20120404
  Transmission Date: 20120825
  Serious: No
  Sender: FDA-Public Use
  Company Number: AR-SANOFI-AVENTIS-2012SA023519

PATIENT
  Age: 3 Month
  Sex: Male

DRUGS (1)
  1. ARAVA [Suspect]
     Route: 064

REACTIONS (3)
  - FOETAL EXPOSURE DURING PREGNANCY [None]
  - FONTANELLE DEPRESSED [None]
  - RENAL DISORDER [None]
